FAERS Safety Report 4849560-7 (Version None)
Quarter: 2005Q4

REPORT INFORMATION
  Report Type: 
  Country: None (occurrence: None)
  Receive Date: 20051207
  Receipt Date: 20051123
  Transmission Date: 20060501
  Serious: Yes (Hospitalization)
  Sender: FDA-Public Use
  Company Number: 2005BI021298

PATIENT
  Age: 40 Year
  Sex: Male
  Weight: 72.5755 kg

DRUGS (5)
  1. AVONEX [Suspect]
     Indication: MULTIPLE SCLEROSIS
     Dosage: IM
     Route: 030
     Dates: start: 20000201, end: 20030101
  2. PHENYTOIN [Concomitant]
  3. OXYBUTYNIN [Concomitant]
  4. GABAPENTIN [Concomitant]
  5. AMANTADINE HCL [Concomitant]

REACTIONS (5)
  - FATIGUE [None]
  - HALLUCINATION [None]
  - HYPERTENSION [None]
  - PLATELET COUNT DECREASED [None]
  - PLATELET DISORDER [None]
